FAERS Safety Report 25262901 (Version 1)
Quarter: 2025Q2

REPORT INFORMATION
  Report Type: Spontaneous
  Country: US (occurrence: None)
  Receive Date: 20250501
  Receipt Date: 20250501
  Transmission Date: 20250717
  Serious: No
  Sender: FDA-CTU
  Company Number: None

PATIENT
  Age: 78 Year
  Sex: Male
  Weight: 71 kg

DRUGS (1)
  1. APIXABAN [Suspect]
     Active Substance: APIXABAN
     Indication: Atrial fibrillation
     Dosage: FREQUENCY : TWICE A DAY;?
     Route: 048
     Dates: start: 20210528, end: 20241219

REACTIONS (6)
  - Melaena [None]
  - Anaemia [None]
  - Upper gastrointestinal haemorrhage [None]
  - Arteriovenous malformation [None]
  - Red blood cell transfusion [None]
  - Gastrointestinal vascular malformation haemorrhagic [None]

NARRATIVE: CASE EVENT DATE: 20241219
